FAERS Safety Report 5862617-7 (Version None)
Quarter: 2008Q3

REPORT INFORMATION
  Report Type: 
  Country: None (occurrence: None)
  Receive Date: 20080828
  Receipt Date: 20080820
  Transmission Date: 20090109
  Serious: Yes (Other)
  Sender: FDA-Public Use
  Company Number: US-BAYER-200813472BCC

PATIENT
  Age: 47 Year
  Sex: Female
  Weight: 57 kg

DRUGS (4)
  1. ALEVE (CAPLET) [Suspect]
     Indication: ACCIDENTAL EXPOSURE
     Dosage: TOTAL DAILY DOSE: 440 MG  UNIT DOSE: 220 MG
     Route: 048
     Dates: start: 20080820
  2. THYROID TAB [Concomitant]
  3. WELLBUTRIN [Concomitant]
  4. YAZ [Concomitant]

REACTIONS (6)
  - BLISTER [None]
  - ERYTHEMA [None]
  - HYPERSENSITIVITY [None]
  - OEDEMA PERIPHERAL [None]
  - RASH MACULAR [None]
  - URTICARIA [None]
